FAERS Safety Report 8913919 (Version 1)
Quarter: 2012Q4

REPORT INFORMATION
  Report Type: Spontaneous
  Country: US (occurrence: None)
  Receive Date: 20121115
  Receipt Date: 20121115
  Transmission Date: 20130627
  Serious: Yes (Other)
  Sender: FDA-Public Use
  Company Number: None

PATIENT
  Age: 71 Year
  Sex: Female
  Weight: 72.12 kg

DRUGS (1)
  1. LEVETIRACETAM [Suspect]
     Dosage: 1/2 tab 1/2 at night

REACTIONS (10)
  - Angina pectoris [None]
  - Headache [None]
  - Rash [None]
  - Pruritus [None]
  - Insomnia [None]
  - Agitation [None]
  - Pain in extremity [None]
  - Pain in extremity [None]
  - Drug ineffective [None]
  - Product quality issue [None]
